FAERS Safety Report 4902385-6 (Version None)
Quarter: 2006Q1

REPORT INFORMATION
  Report Type: 
  Country: None (occurrence: None)
  Receive Date: 20060207
  Receipt Date: 20060201
  Transmission Date: 20060701
  Serious: Yes (Hospitalization)
  Sender: FDA-Public Use
  Company Number: JP-AVENTIS-200610383JP

PATIENT
  Age: 70 Year
  Sex: Female

DRUGS (6)
  1. ARAVA [Suspect]
     Indication: RHEUMATOID ARTHRITIS
     Route: 048
     Dates: start: 20050824, end: 20050826
  2. ARAVA [Suspect]
     Route: 048
     Dates: start: 20050827
  3. VOLTAREN [Concomitant]
     Dosage: DOSE: 2CAPSULES
     Route: 048
  4. PREDNISOLONE [Concomitant]
     Route: 048
     Dates: start: 20050712, end: 20050725
  5. PREDNISOLONE [Concomitant]
     Dates: start: 20050726, end: 20060117
  6. BENET [Concomitant]
     Route: 048

REACTIONS (1)
  - INTERVERTEBRAL DISC PROTRUSION [None]
